FAERS Safety Report 18355627 (Version 1)
Quarter: 2020Q4

REPORT INFORMATION
  Report Type: Spontaneous
  Country: US (occurrence: US)
  Receive Date: 20201007
  Receipt Date: 20201007
  Transmission Date: 20210114
  Serious: No
  Sender: FDA-Public Use
  Company Number: None

PATIENT
  Sex: Female
  Weight: 71.4 kg

DRUGS (11)
  1. CAPECITABINE. [Suspect]
     Active Substance: CAPECITABINE
     Indication: BREAST CANCER
     Dosage: ?          OTHER FREQUENCY:DIVIDED DOSES QD;?
     Route: 048
     Dates: start: 20200414, end: 20201006
  2. CALCIUM 600+D HIGH POTENCY [Concomitant]
  3. FASLODEX [Concomitant]
     Active Substance: FULVESTRANT
  4. AMLODIPINE BESYLATE. [Concomitant]
     Active Substance: AMLODIPINE BESYLATE
  5. LANTUS [Concomitant]
     Active Substance: INSULIN GLARGINE
  6. METFORMIN HCL [Concomitant]
     Active Substance: METFORMIN HYDROCHLORIDE
  7. ASPIR-LOW [Concomitant]
     Active Substance: ASPIRIN
  8. TOPROL XL [Concomitant]
     Active Substance: METOPROLOL SUCCINATE
  9. LISINOPRIL. [Concomitant]
     Active Substance: LISINOPRIL
  10. PLAVIX [Concomitant]
     Active Substance: CLOPIDOGREL BISULFATE
  11. SIMVASTATIN. [Concomitant]
     Active Substance: SIMVASTATIN

REACTIONS (1)
  - Disease progression [None]
